FAERS Safety Report 10686965 (Version 4)
Quarter: 2015Q1

REPORT INFORMATION
  Report Type: Spontaneous
  Country: US (occurrence: US)
  Receive Date: 20150102
  Receipt Date: 20150114
  Transmission Date: 20150720
  Serious: Yes (Death)
  Sender: FDA-Public Use
  Company Number: US-009507513-1412USA013156

PATIENT
  Age: 70 Year
  Sex: Male

DRUGS (8)
  1. LASIX [Concomitant]
     Active Substance: FUROSEMIDE
  2. K-DUR [Concomitant]
     Active Substance: POTASSIUM CHLORIDE
     Route: 048
  3. COREG [Concomitant]
     Active Substance: CARVEDILOL
  4. ZESTRIL [Concomitant]
     Active Substance: LISINOPRIL
  5. COUMADIN [Concomitant]
     Active Substance: WARFARIN SODIUM
  6. JANUVIA [Suspect]
     Active Substance: SITAGLIPTIN PHOSPHATE
     Indication: TYPE 2 DIABETES MELLITUS
     Dosage: 100 MG DAILY
     Route: 048
     Dates: start: 201312, end: 20141227
  7. PACERONE [Concomitant]
     Active Substance: AMIODARONE HYDROCHLORIDE
  8. ZOCOR [Concomitant]
     Active Substance: SIMVASTATIN
     Route: 048

REACTIONS (2)
  - Cardiac disorder [Fatal]
  - Mycoplasma test positive [Unknown]

NARRATIVE: CASE EVENT DATE: 20131212
